FAERS Safety Report 5210544-0 (Version None)
Quarter: 2007Q1

REPORT INFORMATION
  Report Type: 
  Country: None (occurrence: None)
  Receive Date: 20070117
  Receipt Date: 20070108
  Transmission Date: 20070707
  Serious: Yes (Death, Hospitalization)
  Sender: FDA-Public Use
  Company Number: CA-AVENTIS-200710186EU

PATIENT
  Age: 41 Year
  Sex: Male
  Weight: 77.3 kg

DRUGS (27)
  1. FUROSEMIDE [Suspect]
     Dates: start: 20040401, end: 20051210
  2. SPIRONOLACTONE [Suspect]
     Dates: start: 20040401, end: 20051210
  3. SUTENT [Suspect]
     Route: 048
     Dates: start: 20050726, end: 20051113
  4. COUMADIN [Concomitant]
     Route: 048
     Dates: start: 20050501, end: 20051210
  5. ATIVAN [Concomitant]
     Dates: start: 20040101, end: 20051210
  6. IRON [Concomitant]
     Route: 048
     Dates: start: 20050101, end: 20051210
  7. PARIET [Concomitant]
     Dosage: DOSE: UNKNOWN DOSAGE
     Route: 048
     Dates: start: 20051001, end: 20051210
  8. PARIET [Concomitant]
     Dosage: DOSE: UNKNOWN DOSAGE
     Route: 048
     Dates: start: 20051129
  9. TYLENOL [Concomitant]
     Dosage: DOSE: UNKNOWN DOSAGE
     Route: 048
     Dates: start: 20051017, end: 20051210
  10. MORPHINE [Concomitant]
     Dosage: DOSE: UNKNOWN DOSAGE
     Route: 058
     Dates: start: 20051128, end: 20051210
  11. RITALIN [Concomitant]
     Dosage: DOSE: UNKNOWN DOSAGE
     Route: 048
     Dates: start: 20051130, end: 20051210
  12. CITALOPRAM HYDROBROMIDE [Concomitant]
     Dosage: DOSE: UNKNOWN DOSAGE
     Route: 048
     Dates: start: 20051129, end: 20051210
  13. MAGNESIUM [Concomitant]
     Dosage: DOSE: UNKNOWN DOSAGE
     Route: 048
     Dates: start: 20051102, end: 20051210
  14. OXAZEPAM [Concomitant]
     Dosage: DOSE: UNKNOWN DOSAGE
     Route: 048
     Dates: start: 20051128, end: 20051210
  15. DULCOLAX                           /00061602/ [Concomitant]
     Dosage: DOSE: UNKNOWN DOSAGE
     Dates: start: 20051128, end: 20051210
  16. ENOXAPARIN SODIUM [Concomitant]
     Dosage: DOSE: UNKNOWN DOSAGE
     Route: 058
     Dates: start: 20051129, end: 20051210
  17. METHOTRIMEPRAZINE [Concomitant]
     Dosage: DOSE: UNKNOWN DOSAGE
     Route: 048
     Dates: start: 20051101, end: 20051210
  18. LEVOTHYROXINE SODIUM [Concomitant]
     Dosage: DOSE: UNKNOWN DOSAGE
     Route: 048
     Dates: start: 20051127, end: 20051210
  19. METHYLPHENIDATE HCL [Concomitant]
     Dosage: DOSE: UNKNOWN DOSAGE
     Route: 048
     Dates: start: 20051130, end: 20051210
  20. DIMENHYDRINATE [Concomitant]
     Dosage: DOSE: UNKNOWN DOSAGE
     Route: 048
     Dates: start: 20051128, end: 20051210
  21. SENNOSIDE [Concomitant]
     Dosage: DOSE: UNKNOWN DOSAGE
     Route: 048
     Dates: start: 20051128, end: 20051210
  22. ELTROXIN [Concomitant]
     Dosage: DOSE: UNKNOWN DOSAGE
     Route: 048
     Dates: start: 20051127, end: 20051210
  23. NOZINAN                            /00038601/ [Concomitant]
     Dosage: DOSE: UNKNOWN DOSAGE
     Route: 048
     Dates: start: 20051129, end: 20051210
  24. PANTOPRAZOLE SODIUM [Concomitant]
     Dosage: DOSE: UNKNOWN DOSAGE
     Route: 048
     Dates: start: 20051128, end: 20051210
  25. IRON SULFATETHIAMIN COMPOUND TAB [Concomitant]
     Dosage: DOSE: UNKNOWN DOSAGE
     Route: 048
     Dates: start: 20051128, end: 20051210
  26. GRAVOL TAB [Concomitant]
     Dosage: DOSE: UNKNOWN DOSAGE
     Route: 048
     Dates: start: 20031128, end: 20051210
  27. CELEXA                             /00582602/ [Concomitant]
     Dosage: DOSE: UNKNOWN DOSAGE
     Route: 048
     Dates: start: 20051128, end: 20051210

REACTIONS (10)
  - ANAEMIA [None]
  - ASCITES [None]
  - CONDITION AGGRAVATED [None]
  - CONSTIPATION [None]
  - DEPRESSION [None]
  - DISEASE PROGRESSION [None]
  - DRUG INEFFECTIVE [None]
  - FATIGUE [None]
  - GASTROINTESTINAL STROMAL TUMOUR [None]
  - HYPONATRAEMIA [None]
